FAERS Safety Report 5189783-3 (Version None)
Quarter: 2006Q4

REPORT INFORMATION
  Report Type: 
  Country: None (occurrence: None)
  Receive Date: 20061218
  Receipt Date: 20061213
  Transmission Date: 20070319
  Serious: Yes (Other)
  Sender: FDA-Public Use
  Company Number: 009494

PATIENT
  Sex: Female

DRUGS (5)
  1. MEDROXYPROGESTERONE ACETATE [Suspect]
     Dosage: ORAL
     Route: 048
     Dates: start: 19840101, end: 20021201
  2. CYCRIN [Suspect]
     Dosage: ORAL
     Route: 048
     Dates: start: 19840101, end: 20021201
  3. PREMARIN [Suspect]
     Dosage: ORAL
     Route: 048
     Dates: start: 19940101, end: 20021201
  4. PREMPRO [Suspect]
     Dosage: ORAL
     Route: 048
     Dates: start: 19840101, end: 20021201
  5. PROVERA [Suspect]
     Dosage: ORAL
     Route: 048
     Dates: start: 19840101, end: 20021201

REACTIONS (1)
  - BREAST CANCER FEMALE [None]
